FAERS Safety Report 5752170-0 (Version None)
Quarter: 2008Q2

REPORT INFORMATION
  Report Type: 
  Country: None (occurrence: None)
  Receive Date: 20080527
  Receipt Date: 20080523
  Transmission Date: 20081010
  Serious: Yes (Other)
  Sender: FDA-Public Use
  Company Number: 2008AL004308

PATIENT
  Age: 59 Year
  Sex: Male
  Weight: 121.1104 kg

DRUGS (8)
  1. DIGOXIN [Suspect]
     Indication: CARDIOMEGALY
     Dosage: .25 MG PO DAILY
     Route: 048
     Dates: start: 20080324, end: 20080418
  2. GLYBURIDE [Concomitant]
  3. COREG [Concomitant]
  4. LISINOPRIL [Concomitant]
  5. LASIX [Concomitant]
  6. POTASSIUM CHLORIDE [Concomitant]
  7. ALLOPURINOL [Concomitant]
  8. SPIRONLAC [Concomitant]

REACTIONS (5)
  - DEHYDRATION [None]
  - FALL [None]
  - LOSS OF CONSCIOUSNESS [None]
  - RENAL FAILURE [None]
  - VOMITING [None]
